FAERS Safety Report 18535398 (Version 1)
Quarter: 2020Q4

REPORT INFORMATION
  Report Type: Spontaneous
  Country: US (occurrence: US)
  Receive Date: 20201123
  Receipt Date: 20201123
  Transmission Date: 20210114
  Serious: No
  Sender: FDA-Public Use
  Company Number: US-MATRIXX INITIATIVES, INC.-2096196

PATIENT
  Sex: Female

DRUGS (1)
  1. ZICAM NOS [Suspect]
     Active Substance: ECHINACEA ANGUSTIFOLIA\HOMEOPATHICS\ZINC ACETATE\ZINC GLUCONATE OR HOMEOPATHICS\ZINC ACETATE\ZINC GLUCONATE

REACTIONS (1)
  - Anosmia [None]
